FAERS Safety Report 9257176 (Version 1)
Quarter: 2013Q1

REPORT INFORMATION
  Report Type: Spontaneous
  Country: US (occurrence: None)
  Receive Date: 20121212
  Receipt Date: 20121212
  Transmission Date: 20140127
  Serious: No
  Sender: FDA-Public Use
  Company Number: 1209USA000289

PATIENT
  Sex: Male

DRUGS (5)
  1. PEGINTRON [Suspect]
     Dosage: MIX AS DIRECTED, DIAL TO 0.5 ML AND INJECT SUBQ WEEKLY AS DIRECTED BY YOUR PHYSICIAN
     Route: 058
  2. VICTRELIS [Suspect]
  3. BENADRYL (DIPHENHYDRAMINE HYDROCHLORIDE) [Concomitant]
  4. TYLENOL (ACETAMINOPHEN) [Concomitant]
  5. RIBAPAK (RIBAVIRIN) [Concomitant]

REACTIONS (4)
  - Drug ineffective [None]
  - Furuncle [None]
  - Platelet count decreased [None]
  - Productive cough [None]
